FAERS Safety Report 6290585-5 (Version None)
Quarter: 2009Q3

REPORT INFORMATION
  Report Type: 
  Country: None (occurrence: None)
  Receive Date: 20090730
  Receipt Date: 20090722
  Transmission Date: 20100115
  Serious: Yes (Hospitalization)
  Sender: FDA-Public Use
  Company Number: FR-JNJFOC-20090706973

PATIENT
  Sex: Female

DRUGS (4)
  1. RISPERDAL [Suspect]
     Indication: SCHIZOPHRENIA
     Route: 048
  2. TERCIAN [Suspect]
     Indication: SCHIZOPHRENIA
     Route: 048
  3. LEPTICUR [Suspect]
     Indication: SCHIZOPHRENIA
     Route: 048
  4. VALIUM [Suspect]
     Indication: AGITATION
     Route: 048

REACTIONS (4)
  - ABDOMINAL PAIN UPPER [None]
  - BLOOD PRESSURE DECREASED [None]
  - COLITIS ULCERATIVE [None]
  - PYREXIA [None]
